FAERS Safety Report 9522158 (Version 1)
Quarter: 2013Q1

REPORT INFORMATION
  Report Type: Spontaneous
  Country: US (occurrence: None)
  Receive Date: 20130305
  Receipt Date: 20130305
  Transmission Date: 20140127
  Serious: Yes (Hospitalization)
  Sender: FDA-Public Use
  Company Number: 163-21880-12011523

PATIENT
  Age: 60 Year
  Sex: Male
  Weight: 87.54 kg

DRUGS (3)
  1. REVLIMID (LENALIDOMIDE) (25 MILLIGRAM, CAPSULES) [Suspect]
     Indication: PLASMA CELL MYELOMA
     Dosage: 25 MG, QD X 14 DAYS, THEN 7 DAYS
     Dates: start: 20111227, end: 20120106
  2. TYLENOL(PARACETAMOL)(UNKNOWN) [Concomitant]
  3. SILDENAFIL(SILDENAFIL)(UNKNOWN) [Concomitant]

REACTIONS (1)
  - Pneumonia [None]
